FAERS Safety Report 5889709-0 (Version None)
Quarter: 2008Q3

REPORT INFORMATION
  Report Type: 
  Country: None (occurrence: None)
  Receive Date: 20080919
  Receipt Date: 20080916
  Transmission Date: 20090109
  Serious: Yes (Life-Threatening)
  Sender: FDA-Public Use
  Company Number: US-JNJFOC-20080904313

PATIENT
  Age: 6 Month
  Sex: Female
  Weight: 3.9 kg

DRUGS (1)
  1. RISPERDAL [Suspect]
     Indication: DRUG USE FOR UNKNOWN INDICATION
     Dosage: 1 MG, 0.5 MG/KG
     Route: 048

REACTIONS (8)
  - ACCIDENTAL EXPOSURE [None]
  - DRUG TOXICITY [None]
  - ELECTROCARDIOGRAM QT PROLONGED [None]
  - HYPOTENSION [None]
  - LETHARGY [None]
  - MIOSIS [None]
  - MUSCLE RIGIDITY [None]
  - SINUS TACHYCARDIA [None]
